FAERS Safety Report 8541199-5 (Version None)
Quarter: 2012Q3

REPORT INFORMATION
  Report Type: 
  Country: None (occurrence: None)
  Receive Date: 20120726
  Receipt Date: 20120720
  Transmission Date: 20120928
  Serious: No
  Sender: FDA-Public Use
  Company Number: US-BAYER-2012-073741

PATIENT
  Sex: Female

DRUGS (3)
  1. MIRENA [Suspect]
     Dosage: 20 MCG/24HR, CONT
     Route: 015
     Dates: start: 20120718, end: 20120719
  2. BENADRYL [Concomitant]
     Indication: HYPERSENSITIVITY
  3. PREDNISONE [Concomitant]
     Indication: HYPERSENSITIVITY

REACTIONS (3)
  - BODY TEMPERATURE INCREASED [None]
  - DIZZINESS [None]
  - DEVICE EXPULSION [None]
